FAERS Safety Report 23972636 (Version 1)
Quarter: 2024Q2

REPORT INFORMATION
  Report Type: Spontaneous
  Country: US (occurrence: None)
  Receive Date: 20240613
  Receipt Date: 20240613
  Transmission Date: 20240715
  Serious: Yes (Hospitalization)
  Sender: FDA-Public Use
  Company Number: None

PATIENT
  Age: 71 Year
  Sex: Female
  Weight: 144.5 kg

DRUGS (2)
  1. CARBOPLATIN [Suspect]
     Active Substance: CARBOPLATIN
  2. PACLITAXEL (TAXOL) [Concomitant]

REACTIONS (13)
  - Muscular weakness [None]
  - Dyspnoea [None]
  - Somnolence [None]
  - Diarrhoea [None]
  - Diastolic dysfunction [None]
  - Electrocardiogram abnormal [None]
  - Hypotension [None]
  - Dehydration [None]
  - Acute kidney injury [None]
  - Neutropenia [None]
  - Platelet count abnormal [None]
  - Atrial fibrillation [None]
  - Pulmonary mass [None]

NARRATIVE: CASE EVENT DATE: 20240129
